FAERS Safety Report 10011784 (Version 1)
Quarter: 2014Q1

REPORT INFORMATION
  Report Type: Spontaneous
  Country: US (occurrence: None)
  Receive Date: 20140313
  Receipt Date: 20140313
  Transmission Date: 20141002
  Serious: Yes (Other)
  Sender: FDA-Public Use
  Company Number: None

PATIENT
  Sex: Female

DRUGS (3)
  1. VELCADE [Suspect]
     Indication: PLASMA CELL MYELOMA
  2. REVLIMID [Suspect]
     Indication: PLASMA CELL MYELOMA
     Dates: start: 20080701, end: 20090301
  3. DEXAMETHASONE [Concomitant]

REACTIONS (3)
  - Nausea [None]
  - Plasma cell myeloma [None]
  - Disease recurrence [None]
